FAERS Safety Report 8907785 (Version 1)
Quarter: 2012Q4

REPORT INFORMATION
  Report Type: 
  Country: US (occurrence: US)
  Receive Date: 20121113
  Receipt Date: 20121113
  Transmission Date: 20130627
  Serious: No
  Sender: FDA-Public Use
  Company Number: US-AMGEN-USASP2012039503

PATIENT
  Age: 35 Year
  Sex: Male
  Weight: 88.44 kg

DRUGS (6)
  1. ENBREL [Suspect]
     Indication: PRODUCT USED FOR UNKNOWN INDICATION
     Dosage: 50 mg/ml, qwk
     Route: 058
  2. HUMIRA [Concomitant]
     Dosage: 40 mg, UNK
  3. ETODOLAC [Concomitant]
     Dosage: 400 mg, UNK
  4. HYDRALAZINE [Concomitant]
     Dosage: 25 mg, UNK
  5. ALBUTEROL                          /00139501/ [Concomitant]
     Dosage: 2 mg, UNK
  6. FLOVENT [Concomitant]
     Dosage: 110 mg, UNK

REACTIONS (2)
  - Urticaria [Unknown]
  - Drug ineffective [Unknown]
